FAERS Safety Report 7709695-8 (Version None)
Quarter: 2011Q3

REPORT INFORMATION
  Report Type: 
  Country: None (occurrence: None)
  Receive Date: 20110825
  Receipt Date: 20110816
  Transmission Date: 20111222
  Serious: Yes (Hospitalization)
  Sender: FDA-Public Use
  Company Number: NL-GLAXOSMITHKLINE-B0635221A

PATIENT
  Sex: Male
  Weight: 70 kg

DRUGS (19)
  1. NATRIUM CHLORIDE [Concomitant]
     Route: 042
     Dates: start: 20100211
  2. POTASSIUM CHLORIDE + POTASSIUM PHOSPHATE + SODIUM CHLORIDE [Concomitant]
     Dosage: 10ML THREE TIMES PER DAY
     Route: 042
     Dates: start: 20100125, end: 20100128
  3. METOCLOPRAMIDE [Concomitant]
     Route: 048
     Dates: start: 20100129, end: 20100130
  4. OXYCODONE HCL [Concomitant]
     Dates: start: 20091201
  5. MOVICOLON [Concomitant]
     Route: 048
     Dates: start: 20100129
  6. ESOMEPRAZOLE MAGNESIUM [Concomitant]
     Route: 048
     Dates: start: 20091201
  7. ACETAMINOPHEN [Concomitant]
  8. DEXTROSE [Concomitant]
     Route: 042
     Dates: start: 20100125, end: 20100128
  9. CALCIUM CARBONATE [Concomitant]
     Dosage: 500MG TWICE PER DAY
     Route: 048
     Dates: start: 20100125, end: 20100130
  10. DUTASTERIDE [Concomitant]
     Dosage: .5MG PER DAY
     Route: 048
     Dates: start: 20091201, end: 20101130
  11. HYDROCORTISONE [Concomitant]
     Dosage: 100MG THREE TIMES PER DAY
     Route: 042
     Dates: start: 20100215
  12. FENTANYL [Concomitant]
     Dosage: 75UG PER DAY
     Route: 062
     Dates: start: 20091201, end: 20100617
  13. LYCOPENE [Concomitant]
     Dosage: 10MG PER DAY
     Route: 048
     Dates: start: 20100125, end: 20100125
  14. PREDNISOLONE [Concomitant]
     Route: 048
     Dates: start: 20091201, end: 20101228
  15. FUROSEMIDE [Concomitant]
     Route: 042
     Dates: start: 20100127, end: 20100130
  16. IFOSFAMIDE [Suspect]
     Indication: NEOPLASM
     Route: 042
     Dates: start: 20100126, end: 20100128
  17. DICLOFENAC SODIUM [Concomitant]
     Dosage: 75MG TWICE PER DAY
     Route: 048
     Dates: start: 20091201
  18. GOSERELIN [Concomitant]
     Route: 058
     Dates: start: 20091201
  19. PAZOPANIB [Suspect]
     Indication: NEOPLASM
     Route: 048
     Dates: start: 20100119, end: 20100211

REACTIONS (4)
  - ANAL ULCER [None]
  - RECTAL HAEMORRHAGE [None]
  - PROCTALGIA [None]
  - ANAL FISTULA [None]
